FAERS Safety Report 8299433-5 (Version None)
Quarter: 2012Q2

REPORT INFORMATION
  Report Type: 
  Country: None (occurrence: None)
  Receive Date: 20120417
  Receipt Date: 20120404
  Transmission Date: 20120825
  Serious: Yes (Other)
  Sender: FDA-Public Use
  Company Number: AUR-APL-2012-01734

PATIENT
  Age: 27 Year
  Sex: Male

DRUGS (1)
  1. AMOXICILLIN [Suspect]
     Indication: TOOTH ABSCESS
     Dosage: 1 DOSAFE FORMS, TOTAL, ORAL
     Route: 048
     Dates: start: 20120402, end: 20120402

REACTIONS (2)
  - LIP OEDEMA [None]
  - NAUSEA [None]
